FAERS Safety Report 7746874-8 (Version None)
Quarter: 2011Q3

REPORT INFORMATION
  Report Type: 
  Country: None (occurrence: None)
  Receive Date: 20110913
  Receipt Date: 20110830
  Transmission Date: 20111222
  Serious: No
  Sender: FDA-Public Use
  Company Number: US-B.I. PHARMACEUTICALS,INC./RIDGEFIELD-2011-BP-21145BP

PATIENT
  Sex: Male

DRUGS (9)
  1. METFORMIN HCL [Concomitant]
     Route: 048
  2. HYDROCHLOROTHIAZIDE [Concomitant]
     Route: 048
  3. ANDROGEL [Concomitant]
     Route: 061
  4. MULTI-VITAMIN [Concomitant]
     Indication: ROUTINE HEALTH MAINTENANCE
     Route: 048
  5. PRED FORTE [Concomitant]
  6. FLOMAX [Concomitant]
     Route: 048
  7. COZAAR [Concomitant]
     Route: 048
  8. PRADAXA [Suspect]
     Indication: ATRIAL FIBRILLATION
     Dosage: 300 MG
     Route: 048
     Dates: start: 20110823, end: 20110823
  9. VITAMIN B [Concomitant]
     Route: 048

REACTIONS (1)
  - GASTRIC DISORDER [None]
